FAERS Safety Report 17520451 (Version 3)
Quarter: 2020Q2

REPORT INFORMATION
  Report Type: Report from Study
  Country: NL (occurrence: NL)
  Receive Date: 20200310
  Receipt Date: 20200521
  Transmission Date: 20200713
  Serious: Yes (Other)
  Sender: FDA-Public Use
  Company Number: NL-AGIOS-2002NL01697

PATIENT
  Age: 65 Year
  Sex: Female

DRUGS (16)
  1. PARACETAMOL [Concomitant]
     Active Substance: ACETAMINOPHEN
     Indication: PRODUCT USED FOR UNKNOWN INDICATION
     Dosage: 500 MILLIGRAM
     Dates: start: 20200113
  2. ENALAPRIL W/HYDROCHLOROTHIAZIDE [Concomitant]
     Active Substance: ENALAPRIL\HYDROCHLOROTHIAZIDE
     Indication: PRODUCT USED FOR UNKNOWN INDICATION
     Dosage: 20 MILLIGRAM/ 12.5 MILLIGRAM
     Dates: start: 20200107
  3. PANTOPRAZOL [Concomitant]
     Active Substance: PANTOPRAZOLE SODIUM
     Indication: PRODUCT USED FOR UNKNOWN INDICATION
     Dosage: 20 MILLIGRAM, QD
     Dates: start: 20200107
  4. IVOSIDENIB AML [Suspect]
     Active Substance: IVOSIDENIB
     Indication: ACUTE MYELOID LEUKAEMIA
     Dosage: 500 MILLIGRAM
     Dates: start: 20200127, end: 20200214
  5. AMPHOTERICINE B [Concomitant]
     Active Substance: AMPHOTERICIN B
     Indication: PRODUCT USED FOR UNKNOWN INDICATION
     Dosage: 5 MILLILITER, TID
     Dates: start: 20200127
  6. DAUNORUBICIN [Concomitant]
     Active Substance: DAUNORUBICIN
     Indication: ACUTE MYELOID LEUKAEMIA
     Dosage: 120 MILLIGRAM
     Dates: start: 20200127, end: 20200129
  7. XYLOMETAZOLINE [Concomitant]
     Active Substance: XYLOMETAZOLINE
     Indication: PRODUCT USED FOR UNKNOWN INDICATION
     Dosage: UNK
     Dates: start: 20200131
  8. MOVICOLON [Concomitant]
     Active Substance: POLYETHYLENE GLYCOL 3350\POTASSIUM CHLORIDE\SODIUM BICARBONATE\SODIUM CHLORIDE
     Indication: PRODUCT USED FOR UNKNOWN INDICATION
     Dosage: UNK, PRN
     Dates: start: 20200206
  9. METOCLOPRAMIDE. [Concomitant]
     Active Substance: METOCLOPRAMIDE
     Indication: PRODUCT USED FOR UNKNOWN INDICATION
     Dosage: 10 MILLIGRAM, TID AS NEEDED
  10. EUTHYROX [Concomitant]
     Active Substance: LEVOTHYROXINE SODIUM
     Indication: PRODUCT USED FOR UNKNOWN INDICATION
     Dosage: 50 MICROGRAM, QD
     Dates: start: 20200124
  11. OXAZEPAM. [Concomitant]
     Active Substance: OXAZEPAM
     Indication: PRODUCT USED FOR UNKNOWN INDICATION
     Dosage: 10 MILLIGRAM, QD
     Dates: start: 20200120
  12. FOLIUMZUUR [Concomitant]
     Active Substance: FOLIC ACID
     Indication: PRODUCT USED FOR UNKNOWN INDICATION
     Dosage: 5 MILLIGRAM, QD
     Dates: start: 20200108
  13. VALACICLOVIR [Concomitant]
     Active Substance: VALACYCLOVIR HYDROCHLORIDE
     Indication: PRODUCT USED FOR UNKNOWN INDICATION
     Dosage: 500 MILLIGRAM
     Dates: start: 20200207
  14. CYTARABINE. [Concomitant]
     Active Substance: CYTARABINE
     Indication: ACUTE MYELOID LEUKAEMIA
     Dosage: 400 MILLIGRAM
     Dates: start: 20200127, end: 20200202
  15. METOPROLOL. [Concomitant]
     Active Substance: METOPROLOL
     Indication: PRODUCT USED FOR UNKNOWN INDICATION
     Dosage: 50 MILLIGRAM, BID
     Dates: start: 20200117
  16. IPRATROPIUM BROMIDE W/SALBUTAMOL [Concomitant]
     Active Substance: ALBUTEROL\IPRATROPIUM BROMIDE
     Indication: PRODUCT USED FOR UNKNOWN INDICATION
     Dosage: 1-6 TIMES
     Dates: start: 20200127

REACTIONS (1)
  - Otitis externa [Recovered/Resolved]

NARRATIVE: CASE EVENT DATE: 20200214
